FAERS Safety Report 13062248 (Version 5)
Quarter: 2017Q3

REPORT INFORMATION
  Report Type: Spontaneous
  Country: PT (occurrence: PT)
  Receive Date: 20161226
  Receipt Date: 20170906
  Transmission Date: 20171127
  Serious: Yes (Congenital Anomaly, Other)
  Sender: FDA-Public Use
  Company Number: PT-ABBVIE-16P-130-1821777-00

PATIENT
  Sex: Female

DRUGS (1)
  1. VALPROIC ACID. [Suspect]
     Active Substance: VALPROIC ACID
     Indication: MATERNAL EXPOSURE TIMING UNSPECIFIED
     Route: 064

REACTIONS (14)
  - Foetal disorder [Unknown]
  - Foetal exposure during pregnancy [Unknown]
  - Illiteracy [Unknown]
  - Adenoidal hypertrophy [Unknown]
  - Lip disorder [Unknown]
  - Psychomotor skills impaired [Unknown]
  - Developmental delay [Unknown]
  - Speech disorder developmental [Unknown]
  - Dysmorphism [Unknown]
  - Autism spectrum disorder [Unknown]
  - Cognitive disorder [Unknown]
  - Atrial septal defect [Unknown]
  - Otitis media [Unknown]
  - Nipple disorder [Unknown]
